FAERS Safety Report 12887712 (Version 1)
Quarter: 2016Q4

REPORT INFORMATION
  Report Type: Report from Study
  Country: IE (occurrence: IE)
  Receive Date: 20161026
  Receipt Date: 20161026
  Transmission Date: 20170207
  Serious: Yes (Hospitalization)
  Sender: FDA-Public Use
  Company Number: IE-AMGEN-IRLSL2016147555

PATIENT
  Age: 62 Year
  Sex: Female

DRUGS (8)
  1. INEGY [Concomitant]
     Active Substance: EZETIMIBE\SIMVASTATIN
     Dosage: 10.2 MG, UNK (NIGHT)
  2. PERINDOPRIL [Concomitant]
     Active Substance: PERINDOPRIL
     Dosage: 10 MG, QD
  3. MIRAP [Concomitant]
     Dosage: 30 MG, UNK (NIGHT)
  4. DEXAMETHASONE. [Concomitant]
     Active Substance: DEXAMETHASONE
     Dosage: 8 MG, BID
  5. INNOHEP [Concomitant]
     Active Substance: TINZAPARIN SODIUM
     Dosage: 12000 UNIT, QD
  6. CODEINE PHOSPHATE [Concomitant]
     Active Substance: CODEINE PHOSPHATE
     Dosage: 30 MG, QID
  7. NEULASTA [Suspect]
     Active Substance: PEGFILGRASTIM
     Indication: PRODUCT USED FOR UNKNOWN INDICATION
     Dosage: 6 MG, Q3WK
     Route: 058
     Dates: start: 20160927
  8. VALOID [Concomitant]
     Active Substance: CYCLIZINE HYDROCHLORIDE
     Dosage: 50 MG, TID

REACTIONS (2)
  - Diarrhoea [Not Recovered/Not Resolved]
  - Back pain [Recovering/Resolving]

NARRATIVE: CASE EVENT DATE: 20161012
